FAERS Safety Report 15084239 (Version 1)
Quarter: 2018Q2

REPORT INFORMATION
  Report Type: Spontaneous
  Country: US (occurrence: US)
  Receive Date: 20180628
  Receipt Date: 20180628
  Transmission Date: 20180711
  Serious: Yes (Other)
  Sender: FDA-Public Use
  Company Number: US-ASTRAZENECA-2018SE81768

PATIENT
  Age: 18427 Day
  Sex: Female
  Weight: 49.9 kg

DRUGS (2)
  1. ALBUTEROL AND IPRATROPIUM BROMIDE [Concomitant]
     Indication: RESPIRATION ABNORMAL
     Dosage: AS REQUIRED
     Route: 055
  2. SYMBICORT [Suspect]
     Active Substance: BUDESONIDE\FORMOTEROL FUMARATE DIHYDRATE
     Indication: CHRONIC OBSTRUCTIVE PULMONARY DISEASE
     Dosage: 160/4.5 MCG TWO INHALATIONS, TWICE A DAY
     Route: 055

REACTIONS (4)
  - Hypertension [Not Recovered/Not Resolved]
  - End stage renal disease [Not Recovered/Not Resolved]
  - Dyspnoea [Not Recovered/Not Resolved]
  - Drug dose omission [Not Recovered/Not Resolved]

NARRATIVE: CASE EVENT DATE: 20180615
